FAERS Safety Report 4544003-5 (Version None)
Quarter: 2004Q4

REPORT INFORMATION
  Report Type: 
  Country: None (occurrence: None)
  Receive Date: 20041229
  Receipt Date: 20041229
  Transmission Date: 20050328
  Serious: Yes (Hospitalization)
  Sender: FDA-Public Use
  Company Number: None

PATIENT
  Age: 63 Year
  Sex: Male
  Weight: 108.7 kg

DRUGS (3)
  1. VELCADE [Suspect]
     Indication: WALDENSTROM'S MACROGLOBULINAEMIA
     Dosage: 1.3MG/M2   DAYS 1,4,8,11 INTRAVENOUS
     Route: 042
     Dates: start: 20041214, end: 20041223
  2. FOLIC ACID [Concomitant]
  3. COLACE [Concomitant]

REACTIONS (2)
  - PULMONARY EMBOLISM [None]
  - PYREXIA [None]
